FAERS Safety Report 20136483 (Version 1)
Quarter: 2021Q4

REPORT INFORMATION
  Report Type: Spontaneous
  Country: US (occurrence: US)
  Receive Date: 20211201
  Receipt Date: 20211201
  Transmission Date: 20220303
  Serious: Yes (Hospitalization, Other)
  Sender: FDA-Public Use
  Company Number: US-GLAXOSMITHKLINE-USCH2021GSK085519

PATIENT
  Age: 77 Year
  Sex: Male

DRUGS (1)
  1. IBUPROFEN [Suspect]
     Active Substance: IBUPROFEN
     Indication: Product used for unknown indication
     Dosage: UNK, QD

REACTIONS (8)
  - Duodenal ulcer [Unknown]
  - Abdominal pain [Unknown]
  - Melaena [Unknown]
  - Haematemesis [Unknown]
  - Pallor [Unknown]
  - Illness [Unknown]
  - Pancreatic enlargement [Unknown]
  - Vascular pseudoaneurysm [Unknown]
